FAERS Safety Report 15687506 (Version 1)
Quarter: 2018Q4

REPORT INFORMATION
  Report Type: Spontaneous
  Country: US (occurrence: US)
  Receive Date: 20181205
  Receipt Date: 20181205
  Transmission Date: 20190205
  Serious: No
  Sender: FDA-Public Use
  Company Number: US-ROCHE-2066624

PATIENT
  Age: 66 Year
  Sex: Female

DRUGS (2)
  1. VALIUM [Suspect]
     Active Substance: DIAZEPAM
     Indication: MUSCLE SPASMS
     Route: 065
  2. VALIUM [Suspect]
     Active Substance: DIAZEPAM
     Indication: INSOMNIA

REACTIONS (1)
  - Discomfort [Unknown]
